FAERS Safety Report 10022938 (Version 1)
Quarter: 2014Q1

REPORT INFORMATION
  Report Type: Spontaneous
  Country: FR (occurrence: FR)
  Receive Date: 20140319
  Receipt Date: 20140319
  Transmission Date: 20141002
  Serious: Yes (Other)
  Sender: FDA-Public Use
  Company Number: FR-BAXTER-2014BAX013561

PATIENT
  Age: 17 Year
  Sex: Male

DRUGS (24)
  1. KIOVIG, 100 MG/ML, SOLUTION POUR PERFUSION [Suspect]
     Indication: TRANSPLANT REJECTION
     Route: 042
  2. KIOVIG, 100 MG/ML, SOLUTION POUR PERFUSION [Suspect]
     Indication: OFF LABEL USE
     Dosage: 0.1 G/KG
     Route: 042
  3. KIOVIG, 100 MG/ML, SOLUTION POUR PERFUSION [Suspect]
     Dosage: 1 G/KG TWICE AFTER THE FIFTH AND TENTH PP
     Route: 042
  4. KIOVIG, 100 MG/ML, SOLUTION POUR PERFUSION [Suspect]
     Dosage: 0.1 G/KG
     Route: 042
  5. KIOVIG, 100 MG/ML, SOLUTION POUR PERFUSION [Suspect]
     Dosage: 1 G/KG
     Route: 042
  6. METHYLPREDNISOLONE [Suspect]
     Indication: IMMUNOSUPPRESSION
  7. METHYLPREDNISOLONE [Suspect]
     Dosage: 5 PULSES
     Route: 042
  8. METHYLPREDNISOLONE [Suspect]
     Dosage: 4-3-2 MG/KG
     Route: 042
  9. BASILIXIMAB [Suspect]
     Indication: IMMUNOSUPPRESSION
     Dosage: DAYS 0 AND DAY 4
     Route: 065
  10. TACROLIMUS [Suspect]
     Indication: IMMUNOSUPPRESSION
     Dosage: 10 NG/ML
     Route: 065
  11. TACROLIMUS [Suspect]
     Dosage: PROLONGED RELEASED
     Route: 065
  12. TACROLIMUS [Suspect]
     Route: 065
  13. TACROLIMUS [Suspect]
     Dosage: INCREASED DOSING
     Route: 065
  14. MYCOPHENOLATE MOFETIL [Suspect]
     Indication: IMMUNOSUPPRESSION
     Dosage: 1200 MG2
     Route: 065
  15. MYCOPHENOLATE MOFETIL [Suspect]
     Route: 065
  16. MYCOPHENOLATE MOFETIL [Suspect]
     Route: 065
  17. MYCOPHENOLATE MOFETIL [Suspect]
     Dosage: INCREASED DOSING
     Route: 065
  18. ENALAPRIL [Suspect]
     Indication: FIBROSIS
     Route: 065
  19. PREDNISONE [Suspect]
     Indication: FIBROSIS
     Route: 065
  20. PREDNISONE [Suspect]
     Route: 065
  21. BORTEZOMIB [Suspect]
     Indication: PRODUCT USED FOR UNKNOWN INDICATION
     Dosage: DAYS 1,4,8 AND 11
     Route: 065
  22. BORTEZOMIB [Suspect]
     Route: 065
  23. COTRIMOXAZOLE [Suspect]
     Indication: PROPHYLAXIS
     Route: 065
  24. GANCICLOVIR [Suspect]
     Indication: PROPHYLAXIS
     Route: 065

REACTIONS (1)
  - Treatment failure [Unknown]
